FAERS Safety Report 23778317 (Version 1)
Quarter: 2024Q2

REPORT INFORMATION
  Report Type: Other
  Country: CA (occurrence: CA)
  Receive Date: 20240424
  Receipt Date: 20240424
  Transmission Date: 20240716
  Serious: Yes (Hospitalization, Other)
  Sender: FDA-Public Use
  Company Number: CA-DEXPHARM-2024-1051

PATIENT
  Age: 11 Year
  Sex: Female

DRUGS (2)
  1. DEXAMETHASONE [Interacting]
     Active Substance: DEXAMETHASONE
     Dosage: NA
  2. PEG/L-ASPARAGINASE [Interacting]
     Active Substance: PEGASPARGASE
     Dosage: NA

REACTIONS (2)
  - Hypertriglyceridaemia [Recovered/Resolved]
  - Drug interaction [Recovered/Resolved]
